FAERS Safety Report 18991385 (Version 2)
Quarter: 2022Q2

REPORT INFORMATION
  Report Type: Spontaneous
  Country: CH (occurrence: CH)
  Receive Date: 20210310
  Receipt Date: 20220602
  Transmission Date: 20220721
  Serious: Yes (Other)
  Sender: FDA-Public Use
  Company Number: None

PATIENT
  Age: 80 Year
  Sex: Female

DRUGS (31)
  1. RIVAROXABAN [Suspect]
     Active Substance: RIVAROXABAN
     Indication: Product used for unknown indication
     Dosage: 10 MG, UNK
     Route: 048
     Dates: start: 20210127, end: 20210127
  2. NALOXONE HYDROCHLORIDE\OXYCODONE HYDROCHLORIDE [Suspect]
     Active Substance: NALOXONE HYDROCHLORIDE\OXYCODONE HYDROCHLORIDE
     Dates: start: 20210204, end: 20210205
  3. FLUMAZENIL [Suspect]
     Active Substance: FLUMAZENIL
     Dosage: .2 MG, UNK
     Route: 042
     Dates: start: 20210128, end: 202101
  4. FLUMAZENIL [Suspect]
     Active Substance: FLUMAZENIL
     Dosage: .1 MG, UNK
     Dates: start: 202101, end: 20210131
  5. ENOXAPARIN SODIUM [Suspect]
     Active Substance: ENOXAPARIN SODIUM
     Dosage: 60 MG
     Route: 058
     Dates: start: 20210126, end: 20210127
  6. ENOXAPARIN SODIUM [Suspect]
     Active Substance: ENOXAPARIN SODIUM
     Dosage: 40 MG
     Route: 058
     Dates: start: 20210210, end: 20210814
  7. IBUPROFEN [Suspect]
     Active Substance: IBUPROFEN
     Dosage: 600 MG, UNK
     Route: 048
     Dates: start: 20210201, end: 20210201
  8. MORPHINE HYDROCHLORIDE [Suspect]
     Active Substance: MORPHINE HYDROCHLORIDE
     Dosage: .2 MG, UNK
     Route: 042
     Dates: start: 20210128, end: 202101
  9. MORPHINE HYDROCHLORIDE [Suspect]
     Active Substance: MORPHINE HYDROCHLORIDE
     Dosage: .1 MG, UNK
     Dates: start: 202101, end: 20210131
  10. MORPHINE HYDROCHLORIDE [Suspect]
     Active Substance: MORPHINE HYDROCHLORIDE
     Dosage: 60 MG, UNK
     Dates: start: 20210126, end: 20210127
  11. MORPHINE HYDROCHLORIDE [Suspect]
     Active Substance: MORPHINE HYDROCHLORIDE
     Dosage: 40 MG, UNK
     Route: 058
     Dates: start: 20210210, end: 20210814
  12. MORPHINE HYDROCHLORIDE [Suspect]
     Active Substance: MORPHINE HYDROCHLORIDE
     Dosage: UNK
     Dates: start: 20210203, end: 20210208
  13. ELIQUIS [Suspect]
     Active Substance: APIXABAN
     Dates: start: 20210127, end: 20210210
  14. NORSOL [NORFLOXACIN] [Concomitant]
     Dates: end: 20210124
  15. ZYPREXA [Concomitant]
     Active Substance: OLANZAPINE
     Dates: end: 20210124
  16. ESCITALOPRAM [Concomitant]
     Active Substance: ESCITALOPRAM OXALATE
     Dates: end: 20210124
  17. CHOLECALCIFEROL [Concomitant]
     Active Substance: CHOLECALCIFEROL
  18. ACETAMINOPHEN\CODEINE PHOSPHATE [Concomitant]
     Active Substance: ACETAMINOPHEN\CODEINE PHOSPHATE
     Dates: end: 20210124
  19. LAMALINE (ACETAMINOPHEN\CAFFEINE\OPIUM) [Concomitant]
     Active Substance: ACETAMINOPHEN\CAFFEINE\OPIUM
     Dates: end: 20210124
  20. POLYETHYLENE GLYCOL\POTASSIUM CHLORIDE\SODIUM BICARBONATE\SODIUM CHLOR [Concomitant]
     Active Substance: POLYETHYLENE GLYCOL\POTASSIUM CHLORIDE\SODIUM BICARBONATE\SODIUM CHLORIDE
     Dates: end: 20210124
  21. FIG FRUIT OIL\SORBITOL [Concomitant]
     Active Substance: FIG FRUIT OIL\SORBITOL
     Dates: end: 20210124
  22. FLURAZEPAM HYDROCHLORIDE [Concomitant]
     Active Substance: FLURAZEPAM HYDROCHLORIDE
     Dates: end: 20210124
  23. HYALURONATE SODIUM [Concomitant]
     Active Substance: HYALURONATE SODIUM
     Dates: end: 20210124
  24. RETINOL [Concomitant]
     Active Substance: RETINOL
     Dates: end: 20210124
  25. FLOXAL [Concomitant]
     Active Substance: OFLOXACIN
  26. TOBREX [Concomitant]
     Active Substance: TOBRAMYCIN
  27. HEPARIN SODIUM [Concomitant]
     Active Substance: HEPARIN SODIUM
     Dates: start: 20210128, end: 20210129
  28. FOLIC ACID [Concomitant]
     Active Substance: FOLIC ACID
     Dates: start: 20210127
  29. CIPROFLOXACIN [Concomitant]
     Active Substance: CIPROFLOXACIN
     Dates: start: 20210124, end: 20210131
  30. VITAMIN B12 [Concomitant]
     Active Substance: CYANOCOBALAMIN
     Dates: start: 20210126
  31. MELATONIN [Concomitant]
     Active Substance: MELATONIN
     Dates: start: 20210203

REACTIONS (1)
  - Rash maculo-papular [Recovered/Resolved]

NARRATIVE: CASE EVENT DATE: 20210205
